FAERS Safety Report 18045970 (Version 1)
Quarter: 2020Q3

REPORT INFORMATION
  Report Type: Spontaneous
  Country: FR (occurrence: FR)
  Receive Date: 20200720
  Receipt Date: 20200720
  Transmission Date: 20201103
  Serious: Yes (Other)
  Sender: FDA-Public Use
  Company Number: FR-PFIZER INC-2020267226

PATIENT
  Age: 58 Year
  Sex: Female

DRUGS (2)
  1. VENLAFAXINE HCL [Suspect]
     Active Substance: VENLAFAXINE HYDROCHLORIDE
     Indication: DEPRESSION
     Dosage: UNK (HS)
  2. VICTAN [Suspect]
     Active Substance: ETHYL LOFLAZEPATE
     Indication: DEPRESSION
     Dosage: UNK (HS)

REACTIONS (4)
  - Drug abuse [Unknown]
  - Drug withdrawal syndrome [Unknown]
  - Muscle strain [Unknown]
  - Insomnia [Unknown]
